FAERS Safety Report 10428104 (Version 2)
Quarter: 2014Q4

REPORT INFORMATION
  Report Type: Spontaneous
  Country: US (occurrence: US)
  Receive Date: 20140903
  Receipt Date: 20141114
  Transmission Date: 20150528
  Serious: Yes (Hospitalization)
  Sender: FDA-Public Use
  Company Number: US-BAYER-2014-130418

PATIENT
  Age: 46 Year
  Sex: Female
  Weight: 73.92 kg

DRUGS (14)
  1. SIMVASTATIN. [Concomitant]
     Active Substance: SIMVASTATIN
  2. ACYCLOVIR [ACICLOVIR SODIUM] [Concomitant]
  3. BEYAZ [Suspect]
     Active Substance: DROSPIRENONE\ETHINYL ESTRADIOL\LEVOMEFOLATE CALCIUM
     Indication: CONTRACEPTION
     Dosage: UNK
     Route: 048
     Dates: start: 20110809, end: 20120812
  4. OMEPRAZOLE. [Concomitant]
     Active Substance: OMEPRAZOLE
  5. BEYAZ [Suspect]
     Active Substance: DROSPIRENONE\ETHINYL ESTRADIOL\LEVOMEFOLATE CALCIUM
     Indication: MENORRHAGIA
  6. VANCOMYCIN [Concomitant]
     Active Substance: VANCOMYCIN
  7. FERROUS SULFATE [Concomitant]
     Active Substance: FERROUS SULFATE\FERROUS SULFATE, DRIED
     Dosage: 325 MG, UNK
  8. CETIRIZINE [Concomitant]
     Active Substance: CETIRIZINE HYDROCHLORIDE
  9. PLAVIX [Concomitant]
     Active Substance: CLOPIDOGREL BISULFATE
  10. YAZ [Suspect]
     Active Substance: DROSPIRENONE\ETHINYL ESTRADIOL
     Indication: MENORRHAGIA
  11. ROCEPHINE [Concomitant]
     Active Substance: CEFTRIAXONE SODIUM
  12. YAZ [Suspect]
     Active Substance: DROSPIRENONE\ETHINYL ESTRADIOL
     Indication: CONTRACEPTION
     Dosage: UNK
     Route: 048
     Dates: start: 20070125, end: 20110808
  13. ALBUTEROL INHALER [Concomitant]
     Active Substance: ALBUTEROL
  14. DIAZEPAM. [Concomitant]
     Active Substance: DIAZEPAM

REACTIONS (17)
  - Injury [Recovered/Resolved]
  - Adjustment disorder [Recovered/Resolved]
  - Depression [None]
  - Pain [None]
  - Pain [Recovered/Resolved]
  - Confusional state [Recovered/Resolved]
  - Anxiety [None]
  - Cerebrovascular accident [Recovered/Resolved]
  - Mental status changes [Recovered/Resolved]
  - Emotional disorder [None]
  - Impaired work ability [Recovered/Resolved]
  - Aphasia [Recovered/Resolved]
  - Speech disorder [Recovered/Resolved]
  - Cerebral infarction [Recovered/Resolved]
  - Frustration [None]
  - Personality change [Recovered/Resolved]
  - VIIth nerve paralysis [Recovered/Resolved]

NARRATIVE: CASE EVENT DATE: 20120812
